FAERS Safety Report 11889062 (Version 1)
Quarter: 2016Q1

REPORT INFORMATION
  Report Type: Spontaneous
  Country: US (occurrence: US)
  Receive Date: 20160105
  Receipt Date: 20160105
  Transmission Date: 20160526
  Serious: Yes (Other)
  Sender: FDA-Public Use
  Company Number: US-DRREDDYS-USA/USA/15/0055173

PATIENT
  Age: 65 Year
  Sex: Male

DRUGS (11)
  1. CLOTRIMAZOLE. [Interacting]
     Active Substance: CLOTRIMAZOLE
     Indication: ORAL CANDIDIASIS
     Route: 048
  2. MICAFUNGIN [Concomitant]
     Active Substance: MICAFUNGIN
     Indication: ANTIBIOTIC PROPHYLAXIS
     Route: 065
  3. FLUDARABINE [Concomitant]
     Active Substance: FLUDARABINE PHOSPHATE
     Indication: PRODUCT USED FOR UNKNOWN INDICATION
     Dosage: 40 MG/ME2 ON DAY 2, DAY 3, DAY 4, AND DAY 5
     Route: 042
  4. SIROLIMUS. [Interacting]
     Active Substance: SIROLIMUS
     Route: 065
  5. CIPROFLOXACIN. [Suspect]
     Active Substance: CIPROFLOXACIN
     Indication: ANTIBIOTIC PROPHYLAXIS
     Route: 048
  6. VANCOMYCIN [Concomitant]
     Active Substance: VANCOMYCIN
     Indication: PRODUCT USED FOR UNKNOWN INDICATION
     Route: 048
  7. BUSULFAN [Concomitant]
     Active Substance: BUSULFAN
     Indication: PRODUCT USED FOR UNKNOWN INDICATION
     Dosage: 130 MG/ME2  ON DAY 2, DAY 3, DAY 4, AND DAY 5
     Route: 042
  8. TACROLIMUS. [Concomitant]
     Active Substance: TACROLIMUS
     Indication: PROPHYLAXIS AGAINST GRAFT VERSUS HOST DISEASE
     Route: 042
  9. SIROLIMUS. [Interacting]
     Active Substance: SIROLIMUS
     Indication: PROPHYLAXIS AGAINST GRAFT VERSUS HOST DISEASE
     Route: 065
  10. TACROLIMUS. [Interacting]
     Active Substance: TACROLIMUS
     Indication: PROPHYLAXIS AGAINST GRAFT VERSUS HOST DISEASE
     Route: 048
  11. ACYCLOVIR. [Concomitant]
     Active Substance: ACYCLOVIR
     Indication: ANTIBIOTIC PROPHYLAXIS
     Route: 048

REACTIONS (7)
  - Drug interaction [Unknown]
  - Stomatitis [Unknown]
  - Acute kidney injury [Unknown]
  - Immunosuppressant drug level increased [Recovered/Resolved]
  - Oral candidiasis [Recovered/Resolved]
  - Clostridium difficile colitis [Unknown]
  - Venoocclusive liver disease [Recovering/Resolving]
